FAERS Safety Report 9523965 (Version 1)
Quarter: 2013Q1

REPORT INFORMATION
  Report Type: Spontaneous
  Country: US (occurrence: None)
  Receive Date: 20130313
  Receipt Date: 20130313
  Transmission Date: 20140127
  Serious: No
  Sender: FDA-Public Use
  Company Number: 1000028501

PATIENT
  Sex: Female

DRUGS (6)
  1. SAVELLA [Suspect]
  2. FLEXERIL (CYCLOBENZAPRINE) (CYCLOBENZAPRIN)\ [Concomitant]
  3. NEURONTIN (GABAPRENTIN) (GABAPENTIN) [Concomitant]
  4. MORPHINE (MORPHINE) (MORPHINE) [Concomitant]
  5. XANAX (ALPRAZOLAM) (ALPRAZOLAM) [Concomitant]
  6. VALIUM (DIAZEPAM) (DIAZEPAM) [Concomitant]

REACTIONS (1)
  - Drug screen false positive [None]
